FAERS Safety Report 6380465-9 (Version None)
Quarter: 2009Q3

REPORT INFORMATION
  Report Type: 
  Country: None (occurrence: None)
  Receive Date: 20090924
  Receipt Date: 20090914
  Transmission Date: 20100115
  Serious: Yes (Hospitalization, Other)
  Sender: FDA-Public Use
  Company Number: 2008AL012186

PATIENT
  Age: 56 Year
  Sex: Female

DRUGS (21)
  1. DIGOXIN [Suspect]
     Dosage: PO
     Route: 048
  2. LANTUS [Concomitant]
  3. NOVALOG [Concomitant]
  4. PROTONIX [Concomitant]
  5. FUROSEMIDE [Concomitant]
  6. SIMVASTATIN [Concomitant]
  7. AVAPRO [Concomitant]
  8. TOPROL-XL [Concomitant]
  9. NEURONTIN [Concomitant]
  10. ZYRTEC [Concomitant]
  11. ASPIRIN [Concomitant]
  12. XALATAN [Concomitant]
  13. PLAVIX [Concomitant]
  14. GLUCOPHAGE [Concomitant]
  15. GLUCOTROL [Concomitant]
  16. PRINIVIL [Concomitant]
  17. CELEBREX [Concomitant]
  18. ASPIRIN [Concomitant]
  19. DETROL [Concomitant]
  20. INSULIN [Concomitant]
  21. ROXICET [Concomitant]

REACTIONS (31)
  - ABDOMINAL HERNIA [None]
  - ABDOMINAL PAIN [None]
  - ANXIETY [None]
  - ARTHRALGIA [None]
  - BLOOD POTASSIUM INCREASED [None]
  - CARDIAC FAILURE CONGESTIVE [None]
  - CHEST PAIN [None]
  - COUGH [None]
  - DEPRESSION [None]
  - DIZZINESS [None]
  - DYSPNOEA EXERTIONAL [None]
  - DYSSTASIA [None]
  - ECONOMIC PROBLEM [None]
  - GAIT DISTURBANCE [None]
  - HYPOTENSION [None]
  - LUNG INFILTRATION [None]
  - MULTIPLE INJURIES [None]
  - MUSCULAR WEAKNESS [None]
  - NAUSEA [None]
  - NODAL OSTEOARTHRITIS [None]
  - OSTEOARTHRITIS [None]
  - PAIN [None]
  - PAIN IN EXTREMITY [None]
  - PARAESTHESIA [None]
  - PLEURAL EFFUSION [None]
  - RENAL FAILURE CHRONIC [None]
  - RESPIRATORY DISTRESS [None]
  - RHEUMATOID ARTHRITIS [None]
  - SMALL INTESTINAL OBSTRUCTION [None]
  - UNEVALUABLE EVENT [None]
  - VOMITING [None]
